FAERS Safety Report 14046688 (Version 1)
Quarter: 2017Q4

REPORT INFORMATION
  Report Type: Spontaneous
  Country: US (occurrence: None)
  Receive Date: 20171004
  Receipt Date: 20171004
  Transmission Date: 20180321
  Serious: No
  Sender: FDA-Public Use
  Company Number: None

PATIENT
  Age: 68 Year
  Sex: Female
  Weight: 72.58 kg

DRUGS (5)
  1. VITAMIN D3 [Concomitant]
     Active Substance: CHOLECALCIFEROL
  2. MAXIPIME [Suspect]
     Active Substance: CEFEPIME HYDROCHLORIDE
     Indication: KIDNEY INFECTION
     Dosage: 2 GRAMS DAILY WENT TO HOSP. TWICE DAILY FOR INFUSIONS INTRAVENOUS
     Route: 042
     Dates: start: 20170527, end: 20170607
  3. MAGNESIUM [Concomitant]
     Active Substance: MAGNESIUM
  4. MACROBID [Concomitant]
     Active Substance: NITROFURANTOIN\NITROFURANTOIN MONOHYDRATE
  5. CALCIUM [Concomitant]
     Active Substance: CALCIUM

REACTIONS (2)
  - Internal haemorrhage [None]
  - Contusion [None]

NARRATIVE: CASE EVENT DATE: 20170607
